FAERS Safety Report 16371035 (Version 1)
Quarter: 2019Q2

REPORT INFORMATION
  Report Type: Report from Study
  Country: IT (occurrence: IT)
  Receive Date: 20190530
  Receipt Date: 20190530
  Transmission Date: 20190711
  Serious: Yes (Other)
  Sender: FDA-Public Use
  Company Number: IT-DSJP-DSE-2019-118852

PATIENT

DRUGS (2)
  1. CONGESCOR 1.25 MG [Suspect]
     Active Substance: BISOPROLOL FUMARATE
     Indication: HYPERTENSION
     Dosage: 1.25 MG, QD
     Route: 048
     Dates: start: 20180921
  2. PLAUNAZIDE [Suspect]
     Active Substance: HYDROCHLOROTHIAZIDE\OLMESARTAN MEDOXOMIL
     Indication: HYPERTENSION
     Dosage: 20/12.5 MG, QD
     Route: 048
     Dates: start: 20180921

REACTIONS (2)
  - Blood pressure increased [Recovering/Resolving]
  - Therapy non-responder [Recovering/Resolving]

NARRATIVE: CASE EVENT DATE: 20190213
